FAERS Safety Report 5099167-4 (Version None)
Quarter: 2006Q3

REPORT INFORMATION
  Report Type: 
  Country: None (occurrence: None)
  Receive Date: 20060728
  Receipt Date: 20060609
  Transmission Date: 20061208
  Serious: No
  Sender: FDA-Public Use
  Company Number: COT_0615_2006

PATIENT
  Age: 42 Year
  Sex: Female
  Weight: 58.9676 kg

DRUGS (7)
  1. VENTAVIS [Suspect]
     Indication: PULMONARY HYPERTENSION
     Dosage: 5 MCG 6XD IH
     Route: 055
     Dates: start: 20060510
  2. TRACLEER [Concomitant]
  3. DIGOXIN [Concomitant]
  4. LASIX [Concomitant]
  5. IRON [Concomitant]
  6. CLARITIN [Concomitant]
  7. POTASSIUM [Concomitant]

REACTIONS (1)
  - SKIN LACERATION [None]
